FAERS Safety Report 5258731-X (Version None)
Quarter: 2007Q1

REPORT INFORMATION
  Report Type: 
  Country: None (occurrence: None)
  Receive Date: 20070305
  Receipt Date: 20070222
  Transmission Date: 20070707
  Serious: Yes (Life-Threatening)
  Sender: FDA-Public Use
  Company Number: 200702AGG00589

PATIENT
  Age: 78 Year
  Sex: Female

DRUGS (2)
  1. AGGRASTAT [Suspect]
     Indication: ACUTE MYOCARDIAL INFARCTION
     Dosage: INTRAVENOUS (NOT OTHERWISE SPECIFIED)
     Route: 042
     Dates: start: 20061218, end: 20061219
  2. ASPIRIN /00002701/ (TO UNKNOWN) [Concomitant]

REACTIONS (1)
  - VENTRICULAR FIBRILLATION [None]
